FAERS Safety Report 25862182 (Version 1)
Quarter: 2025Q3

REPORT INFORMATION
  Report Type: Spontaneous
  Country: US (occurrence: US)
  Receive Date: 20250930
  Receipt Date: 20250930
  Transmission Date: 20251020
  Serious: Yes (Other)
  Sender: COOPERSURGICAL
  Company Number: US-COOPERSURGICAL, INC.-2025CPS006880

PATIENT
  Age: 33 Year
  Sex: Female
  Weight: 90.703 kg

DRUGS (1)
  1. PARAGARD T 380A [Suspect]
     Active Substance: COPPER
     Route: 015
     Dates: start: 20140122

REACTIONS (11)
  - Reproductive complication associated with device [Unknown]
  - Iron deficiency anaemia [Unknown]
  - Device breakage [Recovered/Resolved]
  - Foreign body in reproductive tract [Recovered/Resolved]
  - Complication of device removal [Recovered/Resolved]
  - Emotional distress [Unknown]
  - Ectropion of cervix [Unknown]
  - Pain [Unknown]
  - Intermenstrual bleeding [Unknown]
  - Menstruation irregular [Unknown]
  - Heavy menstrual bleeding [Unknown]

NARRATIVE: CASE EVENT DATE: 20210601
